FAERS Safety Report 23545696 (Version 4)
Quarter: 2025Q1

REPORT INFORMATION
  Report Type: Spontaneous
  Country: US (occurrence: US)
  Receive Date: 20240220
  Receipt Date: 20250220
  Transmission Date: 20250409
  Serious: Yes (Other)
  Sender: PFIZER
  Company Number: US-PFIZER INC-202400043175

PATIENT
  Age: 76 Year
  Sex: Male

DRUGS (9)
  1. XELJANZ XR [Suspect]
     Active Substance: TOFACITINIB CITRATE
     Dosage: 11 MG, 1X/DAY
     Route: 048
  2. METHOTREXATE [Concomitant]
     Active Substance: METHOTREXATE
  3. SULFAMETHOXAZOLE [Concomitant]
     Active Substance: SULFAMETHOXAZOLE
  4. PREDNISONE [Concomitant]
     Active Substance: PREDNISONE
  5. CELECOXIB [Concomitant]
     Active Substance: CELECOXIB
  6. SILODOSIN [Concomitant]
     Active Substance: SILODOSIN
  7. TIZANIDINE [Concomitant]
     Active Substance: TIZANIDINE
  8. MELATONIN [Concomitant]
     Active Substance: MELATONIN
  9. ALLERGY RELIEF [LORATADINE] [Concomitant]

REACTIONS (2)
  - Prostate infection [Unknown]
  - Hypoacusis [Unknown]
